FAERS Safety Report 22975530 (Version 2)
Quarter: 2023Q4

REPORT INFORMATION
  Report Type: Report from Study
  Country: US (occurrence: US)
  Receive Date: 20230925
  Receipt Date: 20231108
  Transmission Date: 20240110
  Serious: Yes (Other)
  Sender: FDA-Public Use
  Company Number: US-ABBVIE-5419076

PATIENT
  Sex: Male

DRUGS (1)
  1. VENCLEXTA [Suspect]
     Active Substance: VENETOCLAX
     Indication: Mantle cell lymphoma
     Dosage: TAKE 4 TABLET(S) BY MOUTH (400MG) EVERY DAY WITH FOOD + WATER AT THE SAME TIME? DAILY. IF DOSE MI...
     Route: 048

REACTIONS (2)
  - Bursitis infective [Unknown]
  - Off label use [Unknown]
